FAERS Safety Report 18463921 (Version 3)
Quarter: 2020Q4

REPORT INFORMATION
  Report Type: Spontaneous
  Country: US (occurrence: US)
  Receive Date: 20201104
  Receipt Date: 20201130
  Transmission Date: 20210114
  Serious: Yes (Other)
  Sender: FDA-Public Use
  Company Number: US-BIOCODEX SA-202001336

PATIENT

DRUGS (17)
  1. DIACOMIT [Suspect]
     Active Substance: STIRIPENTOL
     Dosage: 250MG EVERY MORNING AND 500MG AT NIGHT
     Route: 048
     Dates: start: 20200922
  2. LEVETIRACETAM. [Concomitant]
     Active Substance: LEVETIRACETAM
     Dosage: 200MG TWICE DAILY
     Route: 048
     Dates: start: 20190917, end: 20200331
  3. LEVETIRACETAM. [Concomitant]
     Active Substance: LEVETIRACETAM
     Dosage: 350MG TWICE DAILY
     Route: 048
     Dates: start: 20200616
  4. KEPPRA [Concomitant]
     Active Substance: LEVETIRACETAM
     Dosage: 3.5ML TWICE DAILY
  5. VALPROIC ACID. [Concomitant]
     Active Substance: VALPROIC ACID
     Indication: EPILEPSY
     Dosage: 125MG TWICE DAILY.
     Route: 048
     Dates: start: 20200728, end: 20201003
  6. LEVETIRACETAM. [Concomitant]
     Active Substance: LEVETIRACETAM
     Indication: EPILEPSY
     Dosage: 100MG TWICE DAILY
     Route: 048
     Dates: start: 20181222, end: 20190206
  7. LEVETIRACETAM. [Concomitant]
     Active Substance: LEVETIRACETAM
     Dosage: 300MG TWICE DAILY
     Route: 048
     Dates: start: 20200401, end: 20200615
  8. DIASTAT ACUDIAL [Concomitant]
     Active Substance: DIAZEPAM
     Indication: PRODUCT USED FOR UNKNOWN INDICATION
     Route: 065
  9. VITAMIN B6 [Concomitant]
     Active Substance: PYRIDOXINE HYDROCHLORIDE
     Indication: PRODUCT USED FOR UNKNOWN INDICATION
     Route: 065
  10. VALPROIC ACID. [Concomitant]
     Active Substance: VALPROIC ACID
     Dosage: 175MG TWICE DAILY.
     Route: 048
     Dates: start: 20201004
  11. DEPAKOTE SPRINKLES [Concomitant]
     Active Substance: DIVALPROEX SODIUM
     Indication: PRODUCT USED FOR UNKNOWN INDICATION
     Route: 065
  12. KEPPRA [Concomitant]
     Active Substance: LEVETIRACETAM
     Indication: PRODUCT USED FOR UNKNOWN INDICATION
     Route: 065
  13. KEPPRA [Concomitant]
     Active Substance: LEVETIRACETAM
     Dosage: 3.5ML TWICE DAILY
  14. PYRIDOXINE HCL [Concomitant]
     Active Substance: PYRIDOXINE HYDROCHLORIDE
     Indication: PRODUCT USED FOR UNKNOWN INDICATION
     Route: 065
  15. VALPROIC ACID. [Concomitant]
     Active Substance: VALPROIC ACID
     Dosage: 175MG TWICE DAILY.
     Route: 048
     Dates: start: 20201004
  16. DIACOMIT [Suspect]
     Active Substance: STIRIPENTOL
     Indication: SEVERE MYOCLONIC EPILEPSY OF INFANCY
     Dosage: 250MG TWICE DAILY
     Route: 048
     Dates: start: 20200821, end: 20200921
  17. LEVETIRACETAM. [Concomitant]
     Active Substance: LEVETIRACETAM
     Dosage: 180MG TWICE DAILY
     Route: 048
     Dates: start: 20190207, end: 20190916

REACTIONS (3)
  - Restlessness [Unknown]
  - Product use in unapproved indication [Unknown]
  - Seizure [Unknown]
